FAERS Safety Report 23338484 (Version 1)
Quarter: 2023Q4

REPORT INFORMATION
  Report Type: Spontaneous
  Country: US (occurrence: None)
  Receive Date: 20231223
  Receipt Date: 20231223
  Transmission Date: 20240109
  Serious: Yes (Hospitalization)
  Sender: FDA-Public Use
  Company Number: None

PATIENT
  Sex: Female
  Weight: 79.4 kg

DRUGS (5)
  1. FEMARA [Suspect]
     Active Substance: LETROZOLE
     Dosage: 60 MG
     Dates: end: 20231218
  2. TRULICITY [Concomitant]
     Active Substance: DULAGLUTIDE
  3. ELIQUIS [Concomitant]
     Active Substance: APIXABAN
  4. METOPROLOL [Concomitant]
     Active Substance: METOPROLOL
  5. SIMVASTATIN [Concomitant]

REACTIONS (12)
  - Neutrophil count increased [None]
  - Fatigue [None]
  - Malaise [None]
  - Asthenia [None]
  - Hypoaesthesia [None]
  - Lethargy [None]
  - Cerebrovascular accident [None]
  - Ataxia [None]
  - Dysarthria [None]
  - Cerebral infarction [None]
  - Ejection fraction decreased [None]
  - Carotid artery stenosis [None]

NARRATIVE: CASE EVENT DATE: 20231218
